FAERS Safety Report 8890128 (Version 1)
Quarter: 2012Q4

REPORT INFORMATION
  Report Type: 
  Country: US (occurrence: US)
  Receive Date: 20121106
  Receipt Date: 20121106
  Transmission Date: 20130627
  Serious: No
  Sender: FDA-Public Use
  Company Number: US-BAYER-2012-116321

PATIENT

DRUGS (4)
  1. ALEVE CAPLET/TABLET,MIDOL EXTENDED RELIEF CAPLET [Suspect]
     Indication: TOOTHACHE
     Dosage: UNK
  2. ORA GEL [Concomitant]
  3. PAIN KILLERS [Concomitant]
  4. $8 TOOTHACHE MEDICINE [Concomitant]

REACTIONS (1)
  - Drug ineffective [None]
